FAERS Safety Report 6923164-4 (Version None)
Quarter: 2010Q3

REPORT INFORMATION
  Report Type: 
  Country: None (occurrence: None)
  Receive Date: 20100811
  Receipt Date: 20100809
  Transmission Date: 20110219
  Serious: Yes (Hospitalization, Disabling)
  Sender: FDA-Public Use
  Company Number: SP02933

PATIENT
  Age: 61 Year
  Sex: Female
  Weight: 80.7403 kg

DRUGS (7)
  1. OSMOPREP [Suspect]
     Indication: BOWEL PREPARATION
     Dosage: (20 TABLETS), ORAL
     Route: 048
     Dates: start: 20100523, end: 20100523
  2. AMLODIPINE [Concomitant]
  3. TRAZODONE HCL [Concomitant]
  4. EVISTA [Concomitant]
  5. CLONAZEPAM [Concomitant]
  6. VENLAFAXINE HCL EXTENDED-RELEASE [Concomitant]
  7. VICODIN [Concomitant]

REACTIONS (8)
  - ABASIA [None]
  - DIABETES MELLITUS [None]
  - DIARRHOEA [None]
  - LOSS OF CONSCIOUSNESS [None]
  - MUSCLE SPASMS [None]
  - RENAL FAILURE [None]
  - TREMOR [None]
  - VOMITING [None]
